FAERS Safety Report 15114146 (Version 3)
Quarter: 2018Q3

REPORT INFORMATION
  Report Type: Spontaneous
  Country: JP (occurrence: JP)
  Receive Date: 20180706
  Receipt Date: 20180801
  Transmission Date: 20181010
  Serious: Yes (Other)
  Sender: FDA-Public Use
  Company Number: JP-CONCORDIA PHARMACEUTICALS INC.-GSH201807-002284

PATIENT
  Age: 77 Year
  Sex: Male
  Weight: 64.5 kg

DRUGS (14)
  1. PREDNISOLONE. [Suspect]
     Active Substance: PREDNISOLONE
     Route: 048
  2. DIFLUPREDNATE [Concomitant]
     Active Substance: DIFLUPREDNATE
     Indication: ECZEMA
     Dosage: EXTERNAL USE
  3. BETAMETHASONE. [Concomitant]
     Active Substance: BETAMETHASONE
     Indication: PEMPHIGOID
  4. SULFAMETHOXAZOLE/TRIMETHOPRIM [Concomitant]
     Active Substance: SULFAMETHOXAZOLE\TRIMETHOPRIM
     Dosage: 1 TABLET/DAY
  5. MEROPENEM HYDRATE [Concomitant]
     Active Substance: MEROPENEM
     Dosage: INFUSION OF 0.5 G/TIME X 3 TIMES/DAY
  6. IVIG THERAPY [Concomitant]
     Indication: PEMPHIGOID
     Dosage: HIGH DOSAGE OFIVIG THERAPY WAS USED FROM THE 61 HOSPITAL DAY
  7. PREDNISOLONE. [Suspect]
     Active Substance: PREDNISOLONE
     Indication: ECZEMA
     Dosage: IN EARLY OCTOBER
     Route: 048
  8. CLINDAMYCIN. [Concomitant]
     Active Substance: CLINDAMYCIN
  9. BEPOTASTINE BESILATE [Concomitant]
     Active Substance: BEPOTASTINE BESILATE
     Indication: ECZEMA
     Dosage: 2 TABLETS/DAY
  10. PREDNISOLONE. [Suspect]
     Active Substance: PREDNISOLONE
     Indication: PEMPHIGOID
     Route: 048
  11. BETAMETHASONE. [Concomitant]
     Active Substance: BETAMETHASONE
     Dosage: FROM 8 TH HOSPITAL DAY
  12. BETAMETHASONE. [Concomitant]
     Active Substance: BETAMETHASONE
     Dosage: ON 23 TH HOSPITAL DAY
  13. BETAMETHASONE. [Concomitant]
     Active Substance: BETAMETHASONE
     Dates: end: 201704
  14. BETAMETHASONE. [Concomitant]
     Active Substance: BETAMETHASONE

REACTIONS (2)
  - Drug ineffective [Unknown]
  - Drug resistance [Unknown]
